FAERS Safety Report 11039203 (Version 2)
Quarter: 2015Q2

REPORT INFORMATION
  Report Type: Report from Study
  Country: DE (occurrence: DE)
  Receive Date: 20150416
  Receipt Date: 20150603
  Transmission Date: 20150821
  Serious: Yes (Life-Threatening, Hospitalization)
  Sender: FDA-Public Use
  Company Number: DE-PFIZER INC-2015126782

PATIENT
  Age: 65 Year
  Sex: Female
  Weight: 79 kg

DRUGS (9)
  1. EXEMESTANE. [Suspect]
     Active Substance: EXEMESTANE
     Indication: BREAST CANCER
     Dosage: 25 MG, DAILY
     Dates: start: 20140516, end: 20140613
  2. AFINITOR [Suspect]
     Active Substance: EVEROLIMUS
     Indication: BREAST CANCER METASTATIC
     Dosage: 10.0 MG, DAILY
     Route: 048
     Dates: start: 20140516, end: 20140613
  3. EXEMESTANE. [Suspect]
     Active Substance: EXEMESTANE
     Dosage: 25 MG, DAILY
     Dates: start: 20140626, end: 20140703
  4. AFINITOR [Suspect]
     Active Substance: EVEROLIMUS
     Dosage: 10.0 MG, DAILY
     Route: 048
     Dates: start: 20140626, end: 20140703
  5. AFINITOR [Suspect]
     Active Substance: EVEROLIMUS
     Dosage: 10.0 MG, DAILY
     Route: 048
     Dates: start: 20140715, end: 20140728
  6. THIORIDAZIN [Concomitant]
     Active Substance: THIORIDAZINE HYDROCHLORIDE
     Dosage: 100 MG, 1X/DAY (1-0-0)
     Dates: start: 2000
  7. EXEMESTANE. [Suspect]
     Active Substance: EXEMESTANE
     Dosage: 25 MG, DAILY
     Dates: start: 20140715, end: 20140728
  8. AMINEURIN [Concomitant]
     Active Substance: AMITRIPTYLINE HYDROCHLORIDE
     Dosage: 100 MG, 1X/DAY (1-0-0)
     Dates: start: 2000
  9. AFINITOR [Suspect]
     Active Substance: EVEROLIMUS
     Dosage: 10.0 MG, DAILY
     Route: 048
     Dates: start: 20140805

REACTIONS (6)
  - Hepatic enzyme increased [Recovered/Resolved]
  - Pyrexia [Recovered/Resolved]
  - Diarrhoea [Unknown]
  - Pneumonitis [Recovered/Resolved]
  - Pyrexia [Unknown]
  - General physical health deterioration [Recovered/Resolved]

NARRATIVE: CASE EVENT DATE: 20140613
